FAERS Safety Report 15683055 (Version 1)
Quarter: 2018Q4

REPORT INFORMATION
  Report Type: Spontaneous
  Country: US (occurrence: US)
  Receive Date: 20181204
  Receipt Date: 20181204
  Transmission Date: 20190205
  Serious: No
  Sender: FDA-Public Use
  Company Number: US-TEVA-2018-US-982141

PATIENT
  Sex: Female

DRUGS (1)
  1. AJOVY [Suspect]
     Active Substance: FREMANEZUMAB-VFRM
     Indication: MIGRAINE
     Dosage: 225 MG PER MONTH
     Route: 058
     Dates: start: 20181104

REACTIONS (4)
  - Rash [Unknown]
  - Urticaria [Unknown]
  - Injection site pruritus [Unknown]
  - Blister [Unknown]

NARRATIVE: CASE EVENT DATE: 20181118
